FAERS Safety Report 6608974-5 (Version None)
Quarter: 2010Q1

REPORT INFORMATION
  Report Type: 
  Country: None (occurrence: None)
  Receive Date: 20100301
  Receipt Date: 20100218
  Transmission Date: 20100710
  Serious: Yes (Life-Threatening, Hospitalization)
  Sender: FDA-Public Use
  Company Number: ES-BAYER-201016263GPV

PATIENT
  Age: 67 Year
  Sex: Male

DRUGS (6)
  1. ADIRO [Suspect]
     Indication: ARTERIAL STENT INSERTION
     Dosage: TOTAL DAILY DOSE: 300 MG  UNIT DOSE: 300 MG
     Route: 048
     Dates: start: 20070801, end: 20100115
  2. SINTROM [Interacting]
     Indication: ARTERIAL STENT INSERTION
     Dosage: TOTAL DAILY DOSE: 3 MG
     Route: 048
     Dates: start: 20070801, end: 20100115
  3. TELMISARTAN [Concomitant]
     Indication: HYPERTENSION
     Route: 048
     Dates: end: 20100115
  4. LOPRESSOR [Concomitant]
     Indication: HYPERTENSION
     Dosage: UNIT DOSE: 100 MG
     Route: 048
     Dates: start: 20070801, end: 20100115
  5. ENALAPRIL MALEATE [Concomitant]
     Indication: HYPERTENSION
     Route: 048
     Dates: end: 20100124
  6. ATORVASTATINA [Concomitant]
     Indication: ISCHAEMIC STROKE
     Route: 048

REACTIONS (3)
  - CONVULSION [None]
  - INTRAVENTRICULAR HAEMORRHAGE [None]
  - RESPIRATORY ACIDOSIS [None]
